FAERS Safety Report 24288233 (Version 2)
Quarter: 2024Q3

REPORT INFORMATION
  Report Type: Spontaneous
  Country: CA (occurrence: CA)
  Receive Date: 20240905
  Receipt Date: 20240927
  Transmission Date: 20241016
  Serious: Yes (Hospitalization)
  Sender: SANDOZ
  Company Number: CA-SANDOZ-SDZ2024CA077790

PATIENT
  Sex: Male

DRUGS (2)
  1. ADALIMUMAB [Suspect]
     Active Substance: ADALIMUMAB
     Indication: Psoriasis
     Dosage: UNK
     Route: 065
  2. SIMLANDI [Suspect]
     Active Substance: ADALIMUMAB-RYVK
     Indication: Psoriasis
     Dosage: UNK
     Route: 058

REACTIONS (5)
  - Complication associated with device [Recovering/Resolving]
  - Inappropriate schedule of product administration [Recovering/Resolving]
  - Product storage error [Recovered/Resolved]
  - Surgery [Recovered/Resolved]
  - Overdose [Recovering/Resolving]
